FAERS Safety Report 4752513-0 (Version None)
Quarter: 2005Q3

REPORT INFORMATION
  Report Type: 
  Country: None (occurrence: None)
  Receive Date: 20050825
  Receipt Date: 20050302
  Transmission Date: 20060218
  Serious: Yes (Hospitalization)
  Sender: FDA-Public Use
  Company Number: JP-ABBOTT-05P-087-0292731-00

PATIENT
  Sex: Male
  Weight: 59 kg

DRUGS (10)
  1. HUMIRA [Suspect]
     Indication: RHEUMATOID ARTHRITIS
     Route: 058
     Dates: start: 20050106, end: 20050216
  2. HUMIRA [Suspect]
     Route: 058
     Dates: start: 20050413
  3. PREDNISOLONE [Concomitant]
     Indication: RHEUMATOID ARTHRITIS
     Route: 048
  4. MELOXICAM [Concomitant]
     Indication: RHEUMATOID ARTHRITIS
     Route: 048
     Dates: start: 20040603
  5. FLURBIPROFEN [Concomitant]
     Indication: RHEUMATOID ARTHRITIS
     Dates: start: 20040624
  6. ISOPHANE INSULIN [Concomitant]
     Indication: DIABETES MELLITUS
     Route: 058
     Dates: start: 20050216
  7. ISOPHANE INSULIN [Concomitant]
     Route: 058
     Dates: start: 20050216
  8. SUCRALFATE [Concomitant]
     Indication: GASTRODUODENAL ULCER
     Route: 048
  9. MISOPROSTOL [Concomitant]
     Indication: GASTRODUODENAL ULCER
     Route: 048
  10. GASTER D [Concomitant]
     Indication: GASTRODUODENAL ULCER
     Route: 048

REACTIONS (1)
  - CRYPTOGENIC ORGANIZING PNEUMONIA [None]
